FAERS Safety Report 9180338 (Version 2)
Quarter: 2013Q2

REPORT INFORMATION
  Report Type: Spontaneous
  Country: US (occurrence: US)
  Receive Date: 20130322
  Receipt Date: 20130614
  Transmission Date: 20140414
  Serious: No
  Sender: FDA-Public Use
  Company Number: US-BIOGENIDEC-2013BI024742

PATIENT
  Age: 56 Year
  Sex: Male

DRUGS (1)
  1. TYSABRI [Suspect]
     Indication: MULTIPLE SCLEROSIS
     Route: 042
     Dates: start: 20120227, end: 20130214

REACTIONS (5)
  - Hemiparesis [Unknown]
  - Central nervous system lesion [Not Recovered/Not Resolved]
  - Drug effect decreased [Unknown]
  - Multiple sclerosis [Unknown]
  - Memory impairment [Not Recovered/Not Resolved]
